FAERS Safety Report 24043310 (Version 1)
Quarter: 2024Q3

REPORT INFORMATION
  Report Type: Spontaneous
  Country: US (occurrence: US)
  Receive Date: 20240702
  Receipt Date: 20240702
  Transmission Date: 20241017
  Serious: No
  Sender: TEVA
  Company Number: US-TEVA-VS-3213563

PATIENT
  Age: 26 Year
  Sex: Male

DRUGS (2)
  1. ADDERALL [Suspect]
     Active Substance: AMPHETAMINE ASPARTATE\AMPHETAMINE SULFATE\DEXTROAMPHETAMINE SACCHARATE\DEXTROAMPHETAMINE SULFATE
     Indication: Product used for unknown indication
     Route: 065
  2. DUPIXENT [Suspect]
     Active Substance: DUPILUMAB
     Indication: Neurodermatitis
     Dosage: 600 MG 1X TO BE FOLLOWED BY 300MG Q O W
     Route: 058
     Dates: start: 20240507

REACTIONS (2)
  - Hordeolum [Recovering/Resolving]
  - Rash erythematous [Recovering/Resolving]

NARRATIVE: CASE EVENT DATE: 20240501
